FAERS Safety Report 4400093-1 (Version None)
Quarter: 2004Q3

REPORT INFORMATION
  Report Type: 
  Country: None (occurrence: None)
  Receive Date: 20040714
  Receipt Date: 20040706
  Transmission Date: 20050211
  Serious: Yes (Death)
  Sender: FDA-Public Use
  Company Number: 2004222847DE

PATIENT
  Age: 69 Year
  Sex: Male
  Weight: 96 kg

DRUGS (7)
  1. FRAGMIN [Suspect]
     Indication: THROMBOSIS PROPHYLAXIS
     Dosage: 2500 IU, QD, SUBCUTANEOUS
     Route: 058
     Dates: start: 20031201, end: 20031205
  2. ANGIOMAX (BIVALIRUDIN) SOLUTION, STERILE [Suspect]
     Indication: ACUTE CORONARY SYNDROME
     Dosage: SEE IMAGE
     Route: 042
     Dates: start: 20031127, end: 20031127
  3. ANGIOMAX (BIVALIRUDIN) SOLUTION, STERILE [Suspect]
     Indication: ACUTE CORONARY SYNDROME
     Dosage: SEE IMAGE
     Route: 042
     Dates: start: 20031127, end: 20031128
  4. ENALAPRIL MALEATE [Concomitant]
  5. ATORVASTATIN CALCIUM [Concomitant]
  6. PANTOPRAZOLE [Concomitant]
  7. SORTIS (ATORVASTATIN CALCIUM) [Concomitant]

REACTIONS (7)
  - CARDIAC TAMPONADE [None]
  - CARDIOMEGALY [None]
  - MYOCARDIAL RUPTURE [None]
  - PERICARDIAL HAEMORRHAGE [None]
  - PULMONARY EMBOLISM [None]
  - PULSE ABSENT [None]
  - SYNCOPE [None]
